FAERS Safety Report 8719022 (Version 3)
Quarter: 2013Q1

REPORT INFORMATION
  Report Type: Spontaneous
  Country: US (occurrence: US)
  Receive Date: 20120813
  Receipt Date: 20130107
  Transmission Date: 20140127
  Serious: No
  Sender: FDA-Public Use
  Company Number: US-009507513-1208USA002827

PATIENT
  Sex: Male

DRUGS (2)
  1. COSOPT [Suspect]
     Dosage: UNK
     Route: 047
  2. COSOPT [Suspect]
     Dosage: UNK
     Route: 047

REACTIONS (1)
  - Ocular hyperaemia [Unknown]
